FAERS Safety Report 7459503-8 (Version None)
Quarter: 2011Q2

REPORT INFORMATION
  Report Type: 
  Country: None (occurrence: None)
  Receive Date: 20110505
  Receipt Date: 20110427
  Transmission Date: 20111010
  Serious: Yes (Hospitalization, Other)
  Sender: FDA-Public Use
  Company Number: JP-GENZYME-THYM-1002085

PATIENT
  Sex: Female
  Weight: 55 kg

DRUGS (56)
  1. CYCLOSPORINE [Concomitant]
     Dosage: UNK
     Dates: start: 20101202, end: 20101202
  2. CYCLOSPORINE [Concomitant]
     Dosage: UNK
     Dates: start: 20101026, end: 20101124
  3. FAMOTIDINE [Concomitant]
     Indication: PRODUCT USED FOR UNKNOWN INDICATION
     Dosage: UNK
     Dates: start: 20100716, end: 20100725
  4. FAMOTIDINE [Concomitant]
     Dosage: UNK
     Dates: start: 20100825, end: 20100825
  5. METHOTREXAT [Concomitant]
     Dosage: UNK
     Dates: start: 20100801, end: 20100801
  6. FILGRASTIM [Concomitant]
     Dosage: UNK
     Dates: start: 20100827, end: 20100827
  7. FILGRASTIM [Concomitant]
     Dosage: UNK
     Dates: start: 20100901, end: 20100902
  8. CYCLOSPORINE [Concomitant]
     Indication: PRODUCT USED FOR UNKNOWN INDICATION
     Dosage: UNK
     Dates: start: 20100922, end: 20101027
  9. CYCLOSPORINE [Concomitant]
     Dosage: UNK
     Dates: start: 20100720, end: 20100921
  10. FREEZE DRIED SULFONATED HUMAN [Concomitant]
     Dosage: UNK
     Dates: start: 20100807, end: 20100808
  11. FREEZE DRIED SULFONATED HUMAN [Concomitant]
     Dosage: UNK
     Dates: start: 20100812, end: 20100812
  12. FREEZE DRIED SULFONATED HUMAN [Concomitant]
     Dosage: UNK
     Dates: start: 20101023, end: 20101024
  13. CEFPIROME SULFATE [Concomitant]
     Dosage: UNK
     Dates: start: 20101120, end: 20101123
  14. FAMOTIDINE [Concomitant]
     Dosage: UNK
     Dates: start: 20100928, end: 20101018
  15. TEICOPLANIN [Concomitant]
     Indication: PRODUCT USED FOR UNKNOWN INDICATION
     Dosage: UNK
     Dates: start: 20100806, end: 20100811
  16. CEFEPIME HYDROCHLORIDE [Concomitant]
     Dosage: UNK
     Dates: start: 20101028, end: 20101101
  17. FREEZE DRIED SULFONATED HUMAN [Concomitant]
     Dosage: UNK
     Dates: start: 20101106, end: 20101106
  18. CEFPIROME SULFATE [Concomitant]
     Indication: PRODUCT USED FOR UNKNOWN INDICATION
     Dosage: UNK
     Dates: start: 20100712, end: 20100727
  19. CEFPIROME SULFATE [Concomitant]
     Dosage: UNK
     Dates: start: 20101016, end: 20101024
  20. METHOTREXAT [Concomitant]
     Dosage: UNK
     Dates: start: 20100724, end: 20100724
  21. METHOTREXAT [Concomitant]
     Dosage: UNK
     Dates: start: 20100727, end: 20100727
  22. MEROPENEM [Concomitant]
     Dosage: UNK
     Dates: start: 20100901, end: 20100904
  23. FREEZE DRIED SULFONATED HUMAN [Concomitant]
     Dosage: UNK
     Dates: start: 20100729, end: 20100729
  24. FREEZE DRIED SULFONATED HUMAN [Concomitant]
     Dosage: UNK
     Dates: start: 20100912, end: 20100914
  25. FREEZE DRIED SULFONATED HUMAN [Concomitant]
     Dosage: UNK
     Dates: start: 20101016, end: 20101017
  26. FREEZE DRIED SULFONATED HUMAN [Concomitant]
     Dosage: UNK
     Dates: start: 20101113, end: 20101113
  27. FOSFLUCONAZOLE [Concomitant]
     Indication: PRODUCT USED FOR UNKNOWN INDICATION
     Dosage: UNK
     Dates: start: 20100712, end: 20100919
  28. FAMOTIDINE [Concomitant]
     Dosage: UNK
     Dates: start: 20100926, end: 20100926
  29. PLATELETS, CONCENTRATED [Concomitant]
     Indication: CYTOMEGALOVIRUS TEST POSITIVE
     Dosage: UNK
     Dates: start: 20100722, end: 20101026
  30. FLUDARA [Suspect]
     Indication: BONE MARROW CONDITIONING REGIMEN
     Dosage: UNK
     Route: 065
     Dates: start: 20100712, end: 20100715
  31. FREEZE DRIED SULFONATED HUMAN [Concomitant]
     Dosage: UNK
     Dates: start: 20100819, end: 20100821
  32. FREEZE DRIED SULFONATED HUMAN [Concomitant]
     Dosage: UNK
     Dates: start: 20100826, end: 20100826
  33. FREEZE DRIED SULFONATED HUMAN [Concomitant]
     Dosage: UNK
     Dates: start: 20100908, end: 20100909
  34. CEFPIROME SULFATE [Concomitant]
     Dosage: UNK
     Dates: start: 20101114, end: 20101117
  35. CEFPIROME SULFATE [Concomitant]
     Dosage: UNK
     Dates: start: 20100905, end: 20100917
  36. FAMOTIDINE [Concomitant]
     Dosage: UNK
     Dates: start: 20100902, end: 20100902
  37. METHOTREXAT [Concomitant]
     Indication: PRODUCT USED FOR UNKNOWN INDICATION
     Dosage: UNK
     Dates: start: 20100722, end: 20100722
  38. FILGRASTIM [Concomitant]
     Indication: PRODUCT USED FOR UNKNOWN INDICATION
     Dosage: UNK
     Dates: start: 20100726, end: 20100812
  39. MEROPENEM [Concomitant]
     Indication: PRODUCT USED FOR UNKNOWN INDICATION
     Dosage: UNK
     Dates: start: 20100727, end: 20100806
  40. CYCLOSPORINE [Concomitant]
     Dosage: UNK
     Dates: start: 20101124, end: 20101214
  41. FREEZE DRIED SULFONATED HUMAN [Concomitant]
     Dosage: UNK
     Dates: start: 20101030, end: 20101031
  42. FREEZE DRIED SULFONATED HUMAN [Concomitant]
     Dosage: UNK
     Dates: start: 20101215, end: 20101215
  43. CEFPIROME SULFATE [Concomitant]
     Dosage: UNK
     Dates: start: 20101210, end: 20101215
  44. FAMOTIDINE [Concomitant]
     Dosage: UNK
     Dates: start: 20100908, end: 20100908
  45. FREEZE DRIED SULFONATED HUMAN [Concomitant]
     Dosage: UNK
     Dates: start: 20100805, end: 20100805
  46. FILGRASTIM [Concomitant]
     Dosage: UNK
     Dates: start: 20101026, end: 20101026
  47. MINOCYCLINE HYDROCHLORIDE [Concomitant]
     Indication: PRODUCT USED FOR UNKNOWN INDICATION
     Dosage: UNK
     Dates: start: 20100727, end: 20100806
  48. CEFEPIME HYDROCHLORIDE [Concomitant]
     Indication: PRODUCT USED FOR UNKNOWN INDICATION
     Dosage: UNK
     Dates: start: 20100806, end: 20100901
  49. THYMOGLOBULIN [Suspect]
     Indication: BONE MARROW CONDITIONING REGIMEN
     Dosage: 69 MG, QD
     Route: 042
     Dates: start: 20100716, end: 20100719
  50. CYCLOPHOSPHAMIDE [Concomitant]
     Indication: PRODUCT USED FOR UNKNOWN INDICATION
     Dosage: UNK
     Dates: start: 20100712, end: 20100715
  51. FREEZE DRIED SULFONATED HUMAN [Concomitant]
     Indication: PRODUCT USED FOR UNKNOWN INDICATION
     Dosage: UNK
     Dates: start: 20100712, end: 20100714
  52. FREEZE DRIED SULFONATED HUMAN [Concomitant]
     Dosage: UNK
     Dates: start: 20100722, end: 20100722
  53. FREEZE DRIED SULFONATED HUMAN [Concomitant]
     Dosage: UNK
     Dates: start: 20100901, end: 20100902
  54. FAMOTIDINE [Concomitant]
     Dosage: UNK
     Dates: start: 20100812, end: 20100819
  55. FILGRASTIM [Concomitant]
     Dosage: UNK
     Dates: start: 20100820, end: 20100820
  56. RED BLOOD CELLS, CONCENTRATED [Concomitant]
     Indication: APLASTIC ANAEMIA
     Dosage: UNK
     Dates: start: 20100917, end: 20101027

REACTIONS (3)
  - CYSTITIS HAEMORRHAGIC [None]
  - CYTOMEGALOVIRUS TEST POSITIVE [None]
  - ACUTE GRAFT VERSUS HOST DISEASE IN SKIN [None]
